FAERS Safety Report 16690289 (Version 1)
Quarter: 2019Q3

REPORT INFORMATION
  Report Type: Spontaneous
  Country: US (occurrence: US)
  Receive Date: 20190809
  Receipt Date: 20190809
  Transmission Date: 20191004
  Serious: No
  Sender: FDA-Public Use
  Company Number: US-009507513-1907USA009786

PATIENT

DRUGS (4)
  1. FOLLISTIM AQ [Suspect]
     Active Substance: FOLLITROPIN
     Dosage: 250 DOSAGE FORM, QD
     Dates: start: 20190709
  2. FOLLISTIM AQ [Suspect]
     Active Substance: FOLLITROPIN
     Dosage: 250 DOSAGE FORM, QD
     Dates: start: 201907
  3. FOLLISTIM AQ [Suspect]
     Active Substance: FOLLITROPIN
     Dosage: 150 UNITS; FREQUENCY REPORTED AS ^PER SLIDING SCALE, DAILY^
     Route: 058
     Dates: start: 20190705
  4. FOLLISTIM [Concomitant]
     Active Substance: FOLLITROPIN
     Indication: PRODUCT USE IN UNAPPROVED INDICATION

REACTIONS (2)
  - Incorrect dose administered [Unknown]
  - Product packaging quantity issue [Unknown]

NARRATIVE: CASE EVENT DATE: 20190709
